FAERS Safety Report 6928400-6 (Version None)
Quarter: 2010Q3

REPORT INFORMATION
  Report Type: 
  Country: None (occurrence: None)
  Receive Date: 20100812
  Receipt Date: 20100802
  Transmission Date: 20110219
  Serious: Yes (Hospitalization, Other)
  Sender: FDA-Public Use
  Company Number: 661561

PATIENT
  Age: 1 Year
  Sex: Male

DRUGS (1)
  1. ERYTHROMYCIN [Suspect]
     Indication: SEPSIS
     Dosage: INTRAVENOUS
     Route: 042

REACTIONS (4)
  - DERMATITIS [None]
  - EXTRAVASATION [None]
  - SKIN GRAFT [None]
  - SKIN NECROSIS [None]
